FAERS Safety Report 23784312 (Version 1)
Quarter: 2024Q2

REPORT INFORMATION
  Report Type: Spontaneous
  Country: US (occurrence: US)
  Receive Date: 20240425
  Receipt Date: 20240425
  Transmission Date: 20240716
  Serious: No
  Sender: FDA-Public Use
  Company Number: US-Kiniksa Pharmaceuticals Ltd.-2023KPU001177

PATIENT
  Age: 56 Year
  Sex: Female

DRUGS (1)
  1. ARCALYST [Suspect]
     Active Substance: RILONACEPT
     Indication: Pericarditis
     Route: 058
     Dates: start: 20231207

REACTIONS (10)
  - Faeces soft [Recovered/Resolved]
  - Pain [Unknown]
  - Rash [Unknown]
  - Injection site rash [Unknown]
  - Injection site paraesthesia [Unknown]
  - Injection site inflammation [Unknown]
  - Injection site erythema [Unknown]
  - Injection site warmth [Unknown]
  - Injection site vesicles [Unknown]
  - Injection site erosion [Unknown]

NARRATIVE: CASE EVENT DATE: 20231207
